FAERS Safety Report 5104124-5 (Version None)
Quarter: 2006Q3

REPORT INFORMATION
  Report Type: 
  Country: None (occurrence: None)
  Receive Date: 20060911
  Receipt Date: 20060831
  Transmission Date: 20061208
  Serious: No
  Sender: FDA-Public Use
  Company Number: 2006-147375-NL

PATIENT
  Sex: Female

DRUGS (2)
  1. MIRTAZAPINE [Suspect]
     Dosage: 22.5 MG ORAL
     Route: 048
  2. HYDROXYCHLOROQUINE SULFATE [Concomitant]

REACTIONS (3)
  - CARDIOMYOPATHY [None]
  - RESTLESS LEGS SYNDROME [None]
  - WEIGHT INCREASED [None]
